FAERS Safety Report 10342425 (Version 2)
Quarter: 2014Q4

REPORT INFORMATION
  Report Type: Spontaneous
  Country: US (occurrence: US)
  Receive Date: 20140725
  Receipt Date: 20141031
  Transmission Date: 20150528
  Serious: Yes (Other)
  Sender: FDA-Public Use
  Company Number: US-GLAXOSMITHKLINE-A1074400A

PATIENT

DRUGS (1)
  1. LAMICTAL XR [Suspect]
     Active Substance: LAMOTRIGINE
     Indication: SEIZURE
     Dosage: 100 MG TABLETS INCREASED TO 200 MG TABLETS ON 6 JUNE 2013
     Route: 065
     Dates: start: 20100408

REACTIONS (2)
  - Drug ineffective [Unknown]
  - Seizure [Unknown]
